FAERS Safety Report 9633817 (Version 2)
Quarter: 2013Q4

REPORT INFORMATION
  Report Type: Spontaneous
  Country: GB (occurrence: GB)
  Receive Date: 20131021
  Receipt Date: 20131021
  Transmission Date: 20140711
  Serious: Yes (Life-Threatening, Other)
  Sender: FDA-Public Use
  Company Number: GB-PFIZER INC-2013271970

PATIENT
  Age: 47 Year
  Sex: Female

DRUGS (2)
  1. DEPO-MEDRONE [Suspect]
     Dosage: 40 MG, UNK
     Route: 065
  2. LIGNOCAINE [Suspect]
     Dosage: UNK

REACTIONS (2)
  - Drug hypersensitivity [Unknown]
  - Loss of consciousness [Recovered/Resolved]
